FAERS Safety Report 6848277-7 (Version None)
Quarter: 2010Q3

REPORT INFORMATION
  Report Type: 
  Country: None (occurrence: None)
  Receive Date: 20100716
  Receipt Date: 20100708
  Transmission Date: 20110219
  Serious: Yes (Disabling)
  Sender: FDA-Public Use
  Company Number: JP-ROCHE-698285

PATIENT
  Age: 67 Year
  Sex: Male

DRUGS (2)
  1. PEGASYS [Suspect]
     Route: 058
     Dates: start: 20090604, end: 20090728
  2. COPEGUS [Suspect]
     Route: 048
     Dates: start: 20090604, end: 20090728

REACTIONS (5)
  - CRYOGLOBULINAEMIA [None]
  - DIARRHOEA [None]
  - MALAISE [None]
  - MONONEUROPATHY MULTIPLEX [None]
  - NAUSEA [None]
